FAERS Safety Report 17544182 (Version 1)
Quarter: 2020Q1

REPORT INFORMATION
  Report Type: Report from Study
  Country: None (occurrence: ES)
  Receive Date: 20200316
  Receipt Date: 20200316
  Transmission Date: 20200409
  Serious: Yes (Hospitalization)
  Sender: FDA-Public Use
  Company Number: ES-ABBVIE-20K-144-3317981-00

PATIENT
  Age: 66 Year
  Sex: Female

DRUGS (2)
  1. FLATORIL [CLEBOPRIDE/DIMETICONE] [Suspect]
     Active Substance: CLEBOPRIDE MALATE\DIMETHICONE
     Indication: FLATULENCE
     Route: 048
     Dates: start: 20200216, end: 20200216
  2. DUODOPA [Suspect]
     Active Substance: CARBIDOPA\LEVODOPA
     Indication: PARKINSON^S DISEASE
     Route: 050
     Dates: start: 20110627

REACTIONS (3)
  - Drug-disease interaction [Recovered/Resolved]
  - Flatulence [Recovered/Resolved]
  - Anxiety [Recovered/Resolved]

NARRATIVE: CASE EVENT DATE: 20200216
